FAERS Safety Report 23040941 (Version 1)
Quarter: 2023Q4

REPORT INFORMATION
  Report Type: Spontaneous
  Country: JP (occurrence: None)
  Receive Date: 20231006
  Receipt Date: 20231006
  Transmission Date: 20240109
  Serious: Yes (Other)
  Sender: FDA-Public Use
  Company Number: 2023A223929

PATIENT
  Age: 80 Year
  Sex: Female

DRUGS (3)
  1. TAGRISSO [Suspect]
     Active Substance: OSIMERTINIB
     Indication: Non-small cell lung cancer
     Route: 048
     Dates: start: 202210, end: 202212
  2. TAGRISSO [Suspect]
     Active Substance: OSIMERTINIB
     Indication: Non-small cell lung cancer
     Route: 048
     Dates: start: 20230307, end: 20230320
  3. AFATINIB DIMALEATE [Suspect]
     Active Substance: AFATINIB DIMALEATE
     Dosage: DOSE UNKNOWN
     Dates: start: 20230520

REACTIONS (5)
  - Pulmonary toxicity [Recovered/Resolved]
  - Malignant neoplasm progression [Not Recovered/Not Resolved]
  - Dyspnoea exertional [Unknown]
  - Oxygen saturation decreased [Unknown]
  - Diarrhoea [Recovered/Resolved]

NARRATIVE: CASE EVENT DATE: 20221201
